FAERS Safety Report 7412457-2 (Version None)
Quarter: 2011Q2

REPORT INFORMATION
  Report Type: 
  Country: None (occurrence: None)
  Receive Date: 20110413
  Receipt Date: 20110411
  Transmission Date: 20111010
  Serious: Yes (Hospitalization)
  Sender: FDA-Public Use
  Company Number: PHHY2011ES29933

PATIENT
  Age: 80 Year
  Sex: Male

DRUGS (2)
  1. STALEVO 100 [Suspect]
     Dosage: 100 MG, Q8H
     Route: 048
     Dates: start: 20090101
  2. MOTILIUM [Suspect]
     Dosage: 22.5 ML DAILY
     Route: 048
     Dates: start: 20090101

REACTIONS (2)
  - DYSPHAGIA [None]
  - THROAT IRRITATION [None]
